FAERS Safety Report 12602562 (Version 1)
Quarter: 2016Q3

REPORT INFORMATION
  Report Type: Spontaneous
  Country: JP (occurrence: JP)
  Receive Date: 20160728
  Receipt Date: 20160728
  Transmission Date: 20161109
  Serious: Yes (Hospitalization)
  Sender: FDA-Public Use
  Company Number: JP-NOVOPROD-500774

PATIENT
  Age: 68 Year
  Sex: Female

DRUGS (1)
  1. NOVORAPID [Suspect]
     Active Substance: INSULIN ASPART
     Indication: TYPE 1 DIABETES MELLITUS
     Dosage: UNK
     Route: 058
     Dates: start: 201507, end: 201604

REACTIONS (2)
  - Diabetes mellitus inadequate control [Not Recovered/Not Resolved]
  - Anti-insulin antibody positive [Not Recovered/Not Resolved]

NARRATIVE: CASE EVENT DATE: 201604
